FAERS Safety Report 6468841-7 (Version None)
Quarter: 2009Q4

REPORT INFORMATION
  Report Type: 
  Country: None (occurrence: None)
  Receive Date: 20091203
  Receipt Date: 20090706
  Transmission Date: 20100525
  Serious: Yes (Hospitalization)
  Sender: FDA-Public Use
  Company Number: US-ELI_LILLY_AND_COMPANY-US200604003316

PATIENT
  Sex: Female

DRUGS (4)
  1. FORTEO [Suspect]
     Indication: OSTEOPOROSIS
     Dosage: UNK, UNK
     Dates: start: 20040101, end: 20060101
  2. CALCIUM [Concomitant]
  3. VITAMIN D [Concomitant]
     Dosage: 50000 U, UNK
  4. HORMONES AND RELATED AGENTS [Concomitant]
     Indication: HORMONE REPLACEMENT THERAPY

REACTIONS (14)
  - ASTHENIA [None]
  - BODY TEMPERATURE DECREASED [None]
  - BONE DENSITY DECREASED [None]
  - CONFUSIONAL STATE [None]
  - DRUG ADMINISTRATION ERROR [None]
  - DRUG INEFFECTIVE [None]
  - FALL [None]
  - FLUID OVERLOAD [None]
  - FOOT FRACTURE [None]
  - ILEOSTOMY [None]
  - INCORRECT STORAGE OF DRUG [None]
  - INTESTINAL OBSTRUCTION [None]
  - MEMORY IMPAIRMENT [None]
  - RESORPTION BONE INCREASED [None]
